FAERS Safety Report 16924170 (Version 1)
Quarter: 2019Q4

REPORT INFORMATION
  Report Type: Spontaneous
  Country: US (occurrence: US)
  Receive Date: 20190823
  Receipt Date: 20190823
  Transmission Date: 20200122
  Serious: No
  Sender: FDA-Public Use
  Company Number: None

PATIENT
  Age: 82 Year
  Sex: Male

DRUGS (1)
  1. ABIRATERONE 250MG [Suspect]
     Active Substance: ABIRATERONE
     Indication: PROSTATE CANCER
     Dosage: ?          OTHER DOSE:4 TABS;?
     Route: 048
     Dates: end: 20190820

REACTIONS (2)
  - Decreased appetite [None]
  - Rash [None]

NARRATIVE: CASE EVENT DATE: 20190627
